FAERS Safety Report 14461429 (Version 1)
Quarter: 2018Q1

REPORT INFORMATION
  Report Type: Report from Study
  Country: FR (occurrence: FR)
  Receive Date: 20180130
  Receipt Date: 20180130
  Transmission Date: 20180509
  Serious: Yes (Hospitalization, Other)
  Sender: FDA-Public Use
  Company Number: FR-TEVA-2018-FR-850414

PATIENT
  Sex: Female

DRUGS (9)
  1. METHOTREXATE. [Suspect]
     Active Substance: METHOTREXATE
     Indication: ACUTE LYMPHOCYTIC LEUKAEMIA
     Dosage: 12 MG, UNK
     Route: 037
     Dates: start: 20170829, end: 20170927
  2. HYDROCORTISONE. [Suspect]
     Active Substance: HYDROCORTISONE
     Indication: ACUTE LYMPHOCYTIC LEUKAEMIA
     Dosage: 15 MG, UNK
     Route: 037
     Dates: start: 20170829, end: 20170927
  3. CYCLOPHOSPHAMIDE. [Suspect]
     Active Substance: CYCLOPHOSPHAMIDE
     Indication: ACUTE LYMPHOCYTIC LEUKAEMIA
     Dosage: 1100 MG, UNK
     Route: 042
     Dates: start: 20170827, end: 20170925
  4. 6-MERCAPTOPURINE MONOHYDRATE [Suspect]
     Active Substance: MERCAPTOPURINE
     Indication: ACUTE LYMPHOCYTIC LEUKAEMIA
     Dosage: 66 MG, UNK
     Route: 048
     Dates: start: 20170827, end: 20171008
  5. PEGASPARGASE [Suspect]
     Active Substance: PEGASPARGASE
     Indication: ACUTE LYMPHOCYTIC LEUKAEMIA
     Dosage: 2750 IU, ONE DOSE
     Route: 042
     Dates: start: 20170911, end: 20170911
  6. CYTARABINE. [Suspect]
     Active Substance: CYTARABINE
     Indication: ACUTE LYMPHOCYTIC LEUKAEMIA
     Dosage: 83 MG, UNK
     Route: 042
     Dates: start: 20170829, end: 20171007
  7. CYTARABINE. [Suspect]
     Active Substance: CYTARABINE
     Dosage: 15 MG, UNK
     Route: 037
     Dates: start: 20170829, end: 20170927
  8. VINCRISTINE [Suspect]
     Active Substance: VINCRISTINE
     Indication: ACUTE LYMPHOCYTIC LEUKAEMIA
     Dosage: 1.6 MG, UNK
     Route: 042
     Dates: start: 20170911
  9. PEGASPARGASE [Suspect]
     Active Substance: PEGASPARGASE
     Dosage: 2750 IU, ONE DOSE
     Dates: start: 20171009, end: 20171009

REACTIONS (3)
  - Cholecystitis [Not Recovered/Not Resolved]
  - Febrile bone marrow aplasia [Recovered/Resolved]
  - Pericardial effusion [Not Recovered/Not Resolved]

NARRATIVE: CASE EVENT DATE: 20171016
